FAERS Safety Report 25509557 (Version 2)
Quarter: 2025Q3

REPORT INFORMATION
  Report Type: Spontaneous
  Country: CA (occurrence: CA)
  Receive Date: 20250703
  Receipt Date: 20250804
  Transmission Date: 20251020
  Serious: Yes (Death, Hospitalization, Disabling, Congenital Anomaly)
  Sender: ROCHE
  Company Number: CA-HALEON-2249280

PATIENT
  Age: 40 Year
  Sex: Female
  Weight: 96 kg

DRUGS (40)
  1. OMALIZUMAB [Suspect]
     Active Substance: OMALIZUMAB
     Indication: Chronic spontaneous urticaria
     Route: 065
  2. OMALIZUMAB [Suspect]
     Active Substance: OMALIZUMAB
     Route: 058
  3. OMALIZUMAB [Suspect]
     Active Substance: OMALIZUMAB
     Route: 058
  4. OMALIZUMAB [Suspect]
     Active Substance: OMALIZUMAB
     Route: 058
  5. OMALIZUMAB [Suspect]
     Active Substance: OMALIZUMAB
     Route: 058
  6. OMALIZUMAB [Suspect]
     Active Substance: OMALIZUMAB
     Route: 058
  7. OMALIZUMAB [Suspect]
     Active Substance: OMALIZUMAB
     Route: 058
  8. OMALIZUMAB [Suspect]
     Active Substance: OMALIZUMAB
     Route: 058
  9. OMALIZUMAB [Suspect]
     Active Substance: OMALIZUMAB
     Route: 058
  10. OMALIZUMAB [Suspect]
     Active Substance: OMALIZUMAB
     Route: 058
  11. OMALIZUMAB [Suspect]
     Active Substance: OMALIZUMAB
     Route: 058
  12. OMALIZUMAB [Suspect]
     Active Substance: OMALIZUMAB
     Route: 058
  13. OMALIZUMAB [Suspect]
     Active Substance: OMALIZUMAB
     Route: 058
  14. OMALIZUMAB [Suspect]
     Active Substance: OMALIZUMAB
     Route: 058
  15. OMALIZUMAB [Suspect]
     Active Substance: OMALIZUMAB
     Route: 058
  16. OMALIZUMAB [Suspect]
     Active Substance: OMALIZUMAB
     Route: 058
  17. RITUXIMAB [Suspect]
     Active Substance: RITUXIMAB
     Indication: Rheumatoid arthritis
     Dosage: 2000 MG, QD
     Route: 065
  18. RITUXIMAB [Suspect]
     Active Substance: RITUXIMAB
     Dosage: 365 MG, QD
     Route: 065
  19. RITUXIMAB [Suspect]
     Active Substance: RITUXIMAB
     Route: 050
  20. RITUXIMAB [Suspect]
     Active Substance: RITUXIMAB
     Dosage: 2000 MG, QD, THERAPY DURATION: 5.0 MONTHS
     Route: 065
  21. RITUXIMAB [Suspect]
     Active Substance: RITUXIMAB
     Route: 050
  22. RITUXIMAB [Suspect]
     Active Substance: RITUXIMAB
     Route: 050
  23. RITUXIMAB [Suspect]
     Active Substance: RITUXIMAB
     Route: 065
  24. RITUXIMAB [Suspect]
     Active Substance: RITUXIMAB
     Route: 065
  25. RITUXIMAB [Suspect]
     Active Substance: RITUXIMAB
     Route: 065
  26. RITUXIMAB [Suspect]
     Active Substance: RITUXIMAB
     Route: 065
  27. RITUXIMAB [Suspect]
     Active Substance: RITUXIMAB
     Route: 058
  28. RITUXIMAB [Suspect]
     Active Substance: RITUXIMAB
     Route: 058
  29. RITUXIMAB [Suspect]
     Active Substance: RITUXIMAB
     Route: 058
  30. RITUXIMAB [Suspect]
     Active Substance: RITUXIMAB
     Dosage: 2 G, QD
     Route: 065
  31. RITUXIMAB [Suspect]
     Active Substance: RITUXIMAB
     Dosage: 2 G, QD
     Route: 065
  32. SYNTHROID [Concomitant]
     Active Substance: LEVOTHYROXINE SODIUM
     Indication: Product used for unknown indication
     Dosage: 1 DOSAGE FORM, QD
     Route: 065
  33. SYNTHROID [Concomitant]
     Active Substance: LEVOTHYROXINE SODIUM
     Dosage: 1 DOSAGE FORM, QD
     Route: 065
  34. NEURONTIN [Concomitant]
     Active Substance: GABAPENTIN
     Indication: Product used for unknown indication
     Route: 065
  35. EBASTINE [Concomitant]
     Active Substance: EBASTINE
     Indication: Product used for unknown indication
     Dosage: 4 DOSAGE FORM, QD
     Route: 050
  36. CIPROFLOXACIN [Concomitant]
     Active Substance: CIPROFLOXACIN
     Indication: Product used for unknown indication
     Route: 065
  37. CIPROFLOXACIN [Concomitant]
     Active Substance: CIPROFLOXACIN
     Route: 065
  38. MONTELUKAST SODIUM [Concomitant]
     Active Substance: MONTELUKAST SODIUM
     Indication: Product used for unknown indication
     Dosage: 1 DOSAGE FORM, QD
     Route: 050
  39. MONTELUKAST SODIUM [Concomitant]
     Active Substance: MONTELUKAST SODIUM
     Dosage: 1 DOSAGE FORM, QD
     Route: 065
  40. CYCLOBENZAPRINE HYDROCHLORIDE [Concomitant]
     Active Substance: CYCLOBENZAPRINE HYDROCHLORIDE
     Indication: Product used for unknown indication
     Route: 065

REACTIONS (56)
  - Wound infection [Fatal]
  - Pruritus [Fatal]
  - Somnolence [Fatal]
  - Abdominal distension [Fatal]
  - Neck pain [Fatal]
  - Hepatitis [Fatal]
  - Dyspepsia [Fatal]
  - Muscular weakness [Fatal]
  - Back injury [Fatal]
  - Nail disorder [Fatal]
  - Coeliac disease [Fatal]
  - Mobility decreased [Fatal]
  - Derealisation [Fatal]
  - Wheezing [Fatal]
  - Headache [Fatal]
  - Depressed mood [Fatal]
  - Peripheral coldness [Fatal]
  - Gait inability [Fatal]
  - Condition aggravated [Fatal]
  - Temperature intolerance [Fatal]
  - Diarrhoea [Fatal]
  - Decreased appetite [Fatal]
  - Urticaria [Fatal]
  - Product label confusion [Fatal]
  - Malaise [Fatal]
  - Insomnia [Fatal]
  - Respiratory tract congestion [Fatal]
  - Heart rate increased [Fatal]
  - Weight increased [Fatal]
  - Blister [Fatal]
  - Suicidal ideation [Fatal]
  - Burning sensation [Fatal]
  - Feeling abnormal [Fatal]
  - Asthenia [Fatal]
  - Weight decreased [Fatal]
  - Gastrooesophageal reflux disease [Fatal]
  - Intentional product use issue [Fatal]
  - Hypoaesthesia [Fatal]
  - Fatigue [Fatal]
  - Grip strength decreased [Fatal]
  - Alopecia [Fatal]
  - Sleep disorder [Fatal]
  - Bursitis [Fatal]
  - Musculoskeletal stiffness [Fatal]
  - Pain in extremity [Fatal]
  - Nausea [Fatal]
  - Erythema [Fatal]
  - Fall [Fatal]
  - Off label use [Fatal]
  - Folliculitis [Fatal]
  - Gastrointestinal disorder [Fatal]
  - Finger deformity [Fatal]
  - Liver function test increased [Fatal]
  - Osteoarthritis [Fatal]
  - Injury [Fatal]
  - Pneumonia [Fatal]
